FAERS Safety Report 13592902 (Version 8)
Quarter: 2018Q1

REPORT INFORMATION
  Report Type: Spontaneous
  Country: CA (occurrence: CA)
  Receive Date: 20170530
  Receipt Date: 20180313
  Transmission Date: 20180508
  Serious: Yes (Hospitalization, Other)
  Sender: FDA-Public Use
  Company Number: CA-CELLTRION INC.-2017CA006873

PATIENT

DRUGS (4)
  1. INFLECTRA [Suspect]
     Active Substance: INFLIXIMAB-DYYB
     Indication: COLITIS ULCERATIVE
     Dosage: 600 MG, CYCLIC EVERY 6 WEEKS
     Route: 042
     Dates: start: 2017, end: 2017
  2. AZATHIOPRINE. [Concomitant]
     Active Substance: AZATHIOPRINE
     Dosage: UNK
     Dates: end: 201710
  3. INFLECTRA [Suspect]
     Active Substance: INFLIXIMAB-DYYB
     Dosage: 600 MG, CYCLIC, EVERY 6 WEEKS
     Route: 042
     Dates: start: 20180103, end: 20180103
  4. INFLECTRA [Suspect]
     Active Substance: INFLIXIMAB-DYYB
     Indication: CROHN^S DISEASE
     Dosage: 400 MG, Q 2, 6 WEEKS, THEN EVERY 8 WEEKS
     Route: 042
     Dates: start: 20170425, end: 2017

REACTIONS (7)
  - Coma [Unknown]
  - Hyperthermia [Unknown]
  - Pneumonia legionella [Unknown]
  - Intestinal haemorrhage [Recovering/Resolving]
  - Weight increased [Unknown]
  - Productive cough [Unknown]
  - Product use issue [Unknown]

NARRATIVE: CASE EVENT DATE: 2017
